FAERS Safety Report 9633805 (Version 1)
Quarter: 2013Q4

REPORT INFORMATION
  Report Type: Spontaneous
  Country: FR (occurrence: FR)
  Receive Date: 20131021
  Receipt Date: 20131021
  Transmission Date: 20140711
  Serious: Yes (Hospitalization)
  Sender: FDA-Public Use
  Company Number: FR-SA-2013SA103619

PATIENT
  Age: 90 Year
  Sex: Male

DRUGS (3)
  1. RIFADINE [Suspect]
     Indication: LUNG DISORDER
     Route: 042
     Dates: start: 20121208, end: 20121214
  2. LOVENOX [Suspect]
     Indication: PRODUCT USED FOR UNKNOWN INDICATION
     Route: 058
     Dates: start: 20121130
  3. VANCOMYCINE [Suspect]
     Indication: LUNG DISORDER
     Route: 042
     Dates: start: 20121130

REACTIONS (1)
  - Hyponatraemia [Recovered/Resolved]
